FAERS Safety Report 23916710 (Version 6)
Quarter: 2024Q3

REPORT INFORMATION
  Report Type: Spontaneous
  Country: AT (occurrence: AT)
  Receive Date: 20240529
  Receipt Date: 20240918
  Transmission Date: 20241016
  Serious: Yes (Other)
  Sender: SANDOZ
  Company Number: AT-AMGEN-AUTSP2024022591

PATIENT
  Age: 35 Year
  Sex: Female
  Weight: 62 kg

DRUGS (99)
  1. ARIMIDEX [Suspect]
     Active Substance: ANASTROZOLE
     Indication: HER2 positive breast cancer
     Dosage: 1 MG, QD, START DATE: 30-JUN-2023
     Route: 048
     Dates: start: 20230630
  2. AROMASIN [Suspect]
     Active Substance: EXEMESTANE
     Indication: HER2 positive breast cancer
     Dosage: 25 MG, QD (MOST RECENT DOSE OF EXEMESTANE: 30/JUN/2023)
     Route: 048
     Dates: start: 20200120, end: 20230630
  3. CAPECITABINE [Suspect]
     Active Substance: CAPECITABINE
     Dosage: 1000 MG, 0.5 MG/DAY
     Route: 048
     Dates: start: 20220623, end: 20230612
  4. CAPECITABINE [Suspect]
     Active Substance: CAPECITABINE
     Indication: HER2 positive breast cancer
     Dosage: 1000 MILLIGRAM; 0.5 UNITS/DAY
     Route: 048
     Dates: start: 20220626, end: 20230612
  5. DOCETAXEL [Suspect]
     Active Substance: DOCETAXEL\DOCETAXEL ANHYDROUS
     Indication: HER2 positive breast cancer
     Dosage: 25 MG, QD, START DATE: 20-JAN-2020
     Route: 065
     Dates: end: 20230630
  6. DOCETAXEL [Suspect]
     Active Substance: DOCETAXEL\DOCETAXEL ANHYDROUS
     Dosage: 25 MG, QD ROUTE OF ADMIN (FREE TEXT): INTRAVENOUS BOLUS
     Route: 040
     Dates: start: 20200120, end: 20230630
  7. DOCETAXEL [Suspect]
     Active Substance: DOCETAXEL\DOCETAXEL ANHYDROUS
     Dosage: 25 MG, QD ROUTE OF ADMIN (FREE TEXT): INTRAVENOUS BOLUS
     Route: 065
     Dates: start: 20200120, end: 20230630
  8. DOCETAXEL [Suspect]
     Active Substance: DOCETAXEL\DOCETAXEL ANHYDROUS
     Dosage: 25 MG, QD ROUTE OF ADMIN (FREE TEXT): INTRAVENOUS BOLUS
     Route: 065
     Dates: start: 20200120, end: 20230630
  9. DOCETAXEL [Suspect]
     Active Substance: DOCETAXEL\DOCETAXEL ANHYDROUS
     Dosage: 75 MG/M2, ONCE EVERY 3 WK (MOST RECENT DOSE PRIOR TO AE 15/NOV/2017) ROUTE OF ADMIN (FREE TEXT): INT
     Route: 065
     Dates: start: 20170621, end: 20171115
  10. DOCETAXEL [Suspect]
     Active Substance: DOCETAXEL\DOCETAXEL ANHYDROUS
     Dosage: 75 MG/M2, ONCE EVERY 3 WK (MOST RECENT DOSE PRIOR TO AE 15/NOV/2017) ROUTE OF ADMIN (FREE TEXT): INT
     Route: 065
     Dates: start: 20170621, end: 20171115
  11. DOCETAXEL [Suspect]
     Active Substance: DOCETAXEL\DOCETAXEL ANHYDROUS
     Indication: HER2 positive breast cancer
     Dosage: 75 MG/M2, TIW, ONCE EVERY 3 WK (MOST RECENT DOSE PRIOR TO AE 15/NOV/2017) ROUTE OF ADMIN (FREE TEXT)
     Route: 040
     Dates: start: 20170621, end: 20171115
  12. ENHERTU [Suspect]
     Active Substance: FAM-TRASTUZUMAB DERUXTECAN-NXKI
     Indication: HER2 positive breast cancer
     Dosage: 1000 MG, TIKEN
     Route: 048
     Dates: start: 20220626, end: 20230612
  13. HERCEPTIN [Suspect]
     Active Substance: TRASTUZUMAB
     Dosage: 6 MG/KG, ONCE EVERY 3 WK ROUTE OF ADMIN (FREE TEXT): INTRAVENOUS BOLUS
     Route: 040
     Dates: start: 20170712, end: 20171115
  14. HERCEPTIN [Suspect]
     Active Substance: TRASTUZUMAB
     Indication: HER2 positive breast cancer
     Dosage: 6 MG/KG, TIW, ONCE EVERY 3 WK ROUTE OF ADMIN (FREE TEXT): INTRAVENOUS BOLUS
     Route: 040
     Dates: start: 20180108, end: 20191127
  15. HERCEPTIN [Suspect]
     Active Substance: TRASTUZUMAB
     Dosage: 600 MG/KG, TIW (ONCE EVERY 3 WK)
     Route: 058
     Dates: start: 20220623
  16. HERCEPTIN [Suspect]
     Active Substance: TRASTUZUMAB
     Dosage: 600 MG/KG, TIW, ONCE EVERY 3 WK
     Route: 058
     Dates: start: 20201028, end: 20210709
  17. HERCEPTIN [Suspect]
     Active Substance: TRASTUZUMAB
     Dosage: 8 MG/KG, TIW, ONCE EVERY 3 WK
     Route: 040
     Dates: start: 20170621, end: 20170621
  18. KADCYLA [Suspect]
     Active Substance: ADO-TRASTUZUMAB EMTANSINE
     Indication: HER2 positive breast cancer
     Dosage: 208 MG, TIW,ONCE EVERY 3 WK ROUTE OF ADMIN (FREE TEXT): INTRAVENOUS BOLUS
     Route: 040
     Dates: start: 20200120, end: 20200302
  19. KADCYLA [Suspect]
     Active Substance: ADO-TRASTUZUMAB EMTANSINE
     Dosage: 208.8 MG, TIW, ONCE EVERY 3 WK ROUTE OF ADMIN (FREE TEXT): INTRAVENOUS BOLUS
     Route: 040
     Dates: start: 20200120, end: 20200302
  20. KADCYLA [Suspect]
     Active Substance: ADO-TRASTUZUMAB EMTANSINE
     Dosage: 237 MG, ONCE EVERY 3 WK ROUTE OF ADMIN (FREE TEXT): INTRAVENOUS BOLUS
     Route: 040
     Dates: start: 20200323, end: 20201006
  21. KADCYLA [Suspect]
     Active Substance: ADO-TRASTUZUMAB EMTANSINE
     Dosage: 237 MG, ONCE EVERY 3 WK ROUTE OF ADMIN (FREE TEXT): INTRAVENOUS BOLUS
     Route: 042
     Dates: start: 20200323, end: 20201006
  22. KADCYLA [Suspect]
     Active Substance: ADO-TRASTUZUMAB EMTANSINE
     Dosage: 600 MG/KG, TIW, ONCE EVERY 3 WK (MOST RECENT DOSE PRIOR TO THE EVENT: 23/JUN/2022)
     Route: 065
     Dates: start: 20220623
  23. KADCYLA [Suspect]
     Active Substance: ADO-TRASTUZUMAB EMTANSINE
     Dosage: 8 MG/KG, TIW, ONCE EVERY 3 WK600 MILLIGRAM/KILOGRAM, Q3WK, MOST RECENT DOSE PRIOR TO THE EVENT: 23/J
     Route: 065
     Dates: start: 20220623
  24. KADCYLA [Suspect]
     Active Substance: ADO-TRASTUZUMAB EMTANSINE
     Dosage: 8 MG, TIW, ONCE EVERY 3 WK (MOST RECENT DOSE PRIOR TO THE EVENT: 23/JUN/2022)
     Route: 042
     Dates: start: 20170712, end: 20171115
  25. KADCYLA [Suspect]
     Active Substance: ADO-TRASTUZUMAB EMTANSINE
     Dosage: 8 MG/KG, TIW, ONCE EVERY 3 WK (MOST RECENT DOSE PRIOR TO THE EVENT: 23/JUN/2022)
     Route: 065
     Dates: start: 20180108, end: 20190127
  26. KADCYLA [Suspect]
     Active Substance: ADO-TRASTUZUMAB EMTANSINE
     Dosage: 8 MG/KG, TIW, ONCE EVERY 3 WK (MOST RECENT DOSE PRIOR TO THE EVENT: 23/JUN/2022)
     Route: 065
     Dates: start: 20210621, end: 20210621
  27. LETROZOLE [Suspect]
     Active Substance: LETROZOLE
     Indication: HER2 positive breast cancer
     Dosage: 2.5 MG, QD (MOST RECENT DOSE PRIOR TO AE 20/JAN/2020)
     Route: 048
     Dates: start: 20180108, end: 20200120
  28. LETROZOLE [Suspect]
     Active Substance: LETROZOLE
     Dosage: 250 MG, QD, MOST RECENT DOSE PRIOR TO AE 09/JUL/2021
     Route: 048
     Dates: start: 20201028, end: 20210709
  29. LETROZOLE [Suspect]
     Active Substance: LETROZOLE
     Dosage: 250 MG, QD, START DATE: 30-JUN-2023, MOST RECENT DOSE PRIOR TO AE 09/JUL/2021
     Route: 048
     Dates: start: 20230630
  30. LETROZOLE [Suspect]
     Active Substance: LETROZOLE
     Dosage: UNK
     Route: 048
     Dates: start: 20230508, end: 20230515
  31. LETROZOLE [Suspect]
     Active Substance: LETROZOLE
     Dosage: UNK
     Route: 065
  32. PERTUZUMAB [Suspect]
     Active Substance: PERTUZUMAB
     Dosage: 420 MG, TIW,  ONCE EVERY 3 WK ROUTE OF ADMIN (FREE TEXT): INTRAVENOUS BOLUS
     Route: 040
     Dates: start: 20170712, end: 20171115
  33. PERTUZUMAB [Suspect]
     Active Substance: PERTUZUMAB
     Dosage: 420 MG, TIW, ONCE EVERY 3 WK ROUTE OF ADMIN (FREE TEXT): INTRAVENOUS BOLUS
     Route: 040
     Dates: start: 20180108, end: 20191127
  34. PERTUZUMAB [Suspect]
     Active Substance: PERTUZUMAB
     Indication: HER2 positive breast cancer
     Dosage: 840 MG, TIW, ONCE EVERY 3 WK (MOST RECENT DOSE PRIOR TO THE EVENT: 8/JAN/2018) ROUTE OF ADMIN (FREE
     Route: 040
     Dates: start: 20170621, end: 20170621
  35. TRASTUZUMAB DERUXTECAN [Suspect]
     Active Substance: TRASTUZUMAB DERUXTECAN
     Indication: HER2 positive breast cancer
     Dosage: 360 MG, ONCE EVERY 3 WK ROUTE OF ADMIN (FREE TEXT): INTRAVENOUS (NOT OTHERWISE SPECIFIED), INJECTION
     Route: 065
     Dates: start: 20210722, end: 20230603
  36. TUCATINIB [Suspect]
     Active Substance: TUCATINIB
     Indication: HER2 positive breast cancer
     Dosage: 150 MG, BID, 0.5/DAY (RECENT DOSE OF TUCTINIB: 12/JUN/2023)
     Route: 048
     Dates: start: 20220623, end: 20230612
  37. TUCATINIB [Suspect]
     Active Substance: TUCATINIB
     Dosage: 420 MG, TIW, ONCE EVERY 3 WK (MOST RECENT DOSE PRIOR TO THE EVENT: 8/JAN/2028)
     Route: 065
     Dates: start: 20170712, end: 20171115
  38. TUCATINIB [Suspect]
     Active Substance: TUCATINIB
     Dosage: 420 MG, TIW, ONCE EVERY 3 WK (MOST RECENT DOSE PRIOR TO THE EVENT: 8/JAN/2028)
     Route: 065
     Dates: start: 20180108, end: 20191127
  39. TUCATINIB [Suspect]
     Active Substance: TUCATINIB
     Dosage: 840 MG, TIW, ONCE EVERY 3 WK (MOST RECENT DOSE PRIOR TO THE EVENT: 8/JAN/2028)
     Route: 065
     Dates: start: 20170621
  40. TUCATINIB [Suspect]
     Active Substance: TUCATINIB
     Dosage: 840 MILLIGRAM, MOST RECENT DOSE PRIOR TO THE EVENT: 8/JAN/
     Route: 065
     Dates: start: 20170621
  41. TYKERB [Suspect]
     Active Substance: LAPATINIB DITOSYLATE
     Dosage: 250 MG, QD, MOST RECENT DOSE PRIOR TO AE 09/JUL/2021
     Route: 048
     Dates: start: 20201028, end: 20210709
  42. TYKERB [Suspect]
     Active Substance: LAPATINIB DITOSYLATE
     Indication: HER2 positive breast cancer
     Dosage: 250 MG, 0.25 DAY, START DATE: 30-JUN-2023
     Route: 048
     Dates: start: 20230630
  43. TYKERB [Suspect]
     Active Substance: LAPATINIB DITOSYLATE
     Dosage: UNK
     Route: 065
  44. XGEVA [Suspect]
     Active Substance: DENOSUMAB
     Dosage: 3.6 MG, Q4W
     Route: 065
     Dates: start: 20180129
  45. XGEVA [Suspect]
     Active Substance: DENOSUMAB
     Indication: HER2 positive breast cancer
     Dosage: UNK
     Route: 065
     Dates: start: 20170621
  46. GOSERELIN [Suspect]
     Active Substance: GOSERELIN
     Indication: HER2 positive breast cancer
     Dosage: 3.6 MG, Q4W, ONCE EVERY 4 WK
     Route: 058
     Dates: start: 20180108
  47. GOSERELIN [Suspect]
     Active Substance: GOSERELIN
     Dosage: UNK
     Route: 048
     Dates: start: 20230508, end: 20230515
  48. GOSERELIN [Suspect]
     Active Substance: GOSERELIN
     Dosage: UNK
     Route: 065
     Dates: start: 20180129
  49. AMOXICILLIN TRIHYDRATE [Concomitant]
     Active Substance: AMOXICILLIN
     Indication: Pneumonia
     Dosage: 420 MG, Q3W, (MOST RECENT DOSE PRIOR TO THE EVENT: 8/JAN/2028)
     Route: 065
     Dates: start: 20180108, end: 20191127
  50. AMOXICILLIN TRIHYDRATE [Concomitant]
     Active Substance: AMOXICILLIN
     Dosage: 420 MG, Q3W, (MOST RECENT DOSE PRIOR TO THE EVENT: 8/JAN/2028)
     Route: 065
     Dates: start: 20170712, end: 20171115
  51. AMOXICILLIN TRIHYDRATE [Concomitant]
     Active Substance: AMOXICILLIN
     Dosage: UNK
     Route: 065
     Dates: start: 20230515
  52. AMOXICILLIN\CLAVULANATE POTASSIUM [Concomitant]
     Active Substance: AMOXICILLIN\CLAVULANATE POTASSIUM
     Indication: Pneumonia
     Dosage: UNK
     Route: 048
     Dates: start: 20230508, end: 20230515
  53. AMOXICILLIN\CLAVULANATE POTASSIUM [Concomitant]
     Active Substance: AMOXICILLIN\CLAVULANATE POTASSIUM
     Indication: Product used for unknown indication
  54. APREPITANT [Concomitant]
     Active Substance: APREPITANT
     Indication: Product used for unknown indication
     Dosage: UNK
     Route: 065
     Dates: start: 20210812
  55. APREPITANT [Concomitant]
     Active Substance: APREPITANT
     Dosage: UNK
     Route: 065
  56. ASCORBIC ACID\CALCIUM PHOSPHATE\CHOLECALCIFEROL\CITRIC ACID MONOHYDRAT [Concomitant]
     Active Substance: ASCORBIC ACID\CALCIUM PHOSPHATE\CHOLECALCIFEROL\CITRIC ACID MONOHYDRATE
     Dosage: UNK
     Route: 048
     Dates: start: 20230508, end: 20230515
  57. ASCORBIC ACID\CALCIUM PHOSPHATE\CHOLECALCIFEROL\CITRIC ACID MONOHYDRAT [Concomitant]
     Active Substance: ASCORBIC ACID\CALCIUM PHOSPHATE\CHOLECALCIFEROL\CITRIC ACID MONOHYDRATE
     Indication: Product used for unknown indication
     Dosage: UNK
     Route: 065
     Dates: start: 20171025
  58. ASCORBIC ACID\CALCIUM PHOSPHATE\CHOLECALCIFEROL\CITRIC ACID MONOHYDRAT [Concomitant]
     Active Substance: ASCORBIC ACID\CALCIUM PHOSPHATE\CHOLECALCIFEROL\CITRIC ACID MONOHYDRATE
     Dosage: UNK
     Route: 065
  59. DEXABENE [Concomitant]
     Dosage: UNK
     Route: 048
     Dates: start: 20230508, end: 20230515
  60. DEXABENE [Concomitant]
     Indication: Product used for unknown indication
     Dosage: UNK
     Route: 065
  61. DIPHENHYDRAMINE HYDROCHLORIDE [Concomitant]
     Active Substance: DIPHENHYDRAMINE HYDROCHLORIDE
     Indication: Product used for unknown indication
     Dosage: UNK
     Route: 048
     Dates: start: 20230508, end: 20230515
  62. DIPHENHYDRAMINE HYDROCHLORIDE [Concomitant]
     Active Substance: DIPHENHYDRAMINE HYDROCHLORIDE
     Dosage: UNK
     Route: 065
  63. ESOMEPRAZOLE [Concomitant]
     Active Substance: ESOMEPRAZOLE
     Dosage: UNK
     Route: 048
     Dates: start: 20230508, end: 20230515
  64. ESOMEPRAZOLE [Concomitant]
     Active Substance: ESOMEPRAZOLE
     Dosage: UNK
     Route: 048
     Dates: start: 20230508, end: 20230515
  65. ESOMEPRAZOLE [Concomitant]
     Active Substance: ESOMEPRAZOLE
     Dosage: UNK
     Route: 048
  66. ESOMEPRAZOLE [Concomitant]
     Active Substance: ESOMEPRAZOLE
     Dosage: UNK
     Route: 048
  67. ESOMEPRAZOLE [Concomitant]
     Active Substance: ESOMEPRAZOLE
     Dosage: UNK
     Route: 048
  68. ESOMEPRAZOLE [Concomitant]
     Active Substance: ESOMEPRAZOLE
     Indication: Product used for unknown indication
     Dosage: UNK
     Route: 065
     Dates: start: 20170621
  69. ESOMEPRAZOLE [Concomitant]
     Active Substance: ESOMEPRAZOLE
     Dosage: UNK
     Route: 065
  70. LOPERAMIDE HYDROCHLORIDE [Concomitant]
     Active Substance: LOPERAMIDE HYDROCHLORIDE
     Indication: Product used for unknown indication
     Dosage: 250 MG, QD (MOST RECENT DOSE PRIOR TO AE 09/JUL/2021)
     Route: 065
     Dates: start: 20201028, end: 20210709
  71. LOPERAMIDE HYDROCHLORIDE [Concomitant]
     Active Substance: LOPERAMIDE HYDROCHLORIDE
     Dosage: UNK
     Route: 048
     Dates: start: 20230508, end: 20230515
  72. LOPERAMIDE HYDROCHLORIDE [Concomitant]
     Active Substance: LOPERAMIDE HYDROCHLORIDE
     Dosage: UNK
     Route: 065
  73. ESOMEPRAZOLE [Concomitant]
     Active Substance: ESOMEPRAZOLE
     Indication: Product used for unknown indication
     Dosage: UNK
     Route: 065
     Dates: start: 20191230
  74. FENTANYL [Concomitant]
     Active Substance: FENTANYL\FENTANYL CITRATE
     Indication: Product used for unknown indication
     Dosage: UNK
     Route: 065
  75. DEXAMETHASONE [Concomitant]
     Active Substance: DEXAMETHASONE
     Dosage: UNK
     Route: 048
     Dates: start: 20230508, end: 20230515
  76. DEXAMETHASONE [Concomitant]
     Active Substance: DEXAMETHASONE
     Indication: Syncope
     Dosage: UNK
     Route: 065
     Dates: start: 20230509
  77. DEXAMETHASONE [Concomitant]
     Active Substance: DEXAMETHASONE
     Dosage: UNK
     Route: 065
  78. CLOBAZAM [Concomitant]
     Active Substance: CLOBAZAM
     Indication: Epilepsy
     Dosage: UNK
     Route: 065
     Dates: start: 20230508
  79. CLOBAZAM [Concomitant]
     Active Substance: CLOBAZAM
     Indication: Product used for unknown indication
     Dosage: UNK
     Route: 065
  80. KETAMINE HYDROCHLORIDE [Concomitant]
     Active Substance: KETAMINE HYDROCHLORIDE
     Indication: Product used for unknown indication
     Dosage: UNK
     Route: 065
     Dates: start: 20230508, end: 20230515
  81. KETOPROFEN [Concomitant]
     Active Substance: KETOPROFEN
     Indication: Product used for unknown indication
     Dosage: UNK
     Route: 065
  82. LEVETIRACETAM [Concomitant]
     Active Substance: LEVETIRACETAM
     Dosage: UNK
     Route: 048
     Dates: start: 20230508, end: 20230515
  83. LEVETIRACETAM [Concomitant]
     Active Substance: LEVETIRACETAM
     Indication: Product used for unknown indication
     Dosage: UNK
     Route: 065
     Dates: start: 20200102
  84. LEVETIRACETAM [Concomitant]
     Active Substance: LEVETIRACETAM
     Dosage: UNK
     Route: 065
  85. LIPEGFILGRASTIM [Concomitant]
     Active Substance: LIPEGFILGRASTIM
     Dosage: UNK
     Route: 048
     Dates: start: 20230508, end: 20230515
  86. LIPEGFILGRASTIM [Concomitant]
     Active Substance: LIPEGFILGRASTIM
     Indication: Product used for unknown indication
     Dosage: UNK
     Route: 065
  87. LOPERAMIDE HYDROCHLORIDE AND SIMETHICONE [Concomitant]
     Active Substance: DIMETHICONE\LOPERAMIDE HYDROCHLORIDE
     Dosage: UNK
     Route: 048
     Dates: start: 20230508, end: 20230515
  88. LOPERAMIDE HYDROCHLORIDE AND SIMETHICONE [Concomitant]
     Active Substance: DIMETHICONE\LOPERAMIDE HYDROCHLORIDE
     Indication: Product used for unknown indication
     Dosage: UNK
     Route: 065
  89. Novalgin [Concomitant]
     Indication: Product used for unknown indication
     Dosage: UNK
     Route: 048
     Dates: start: 20180515
  90. Novalgin [Concomitant]
     Dosage: UNK
     Route: 048
     Dates: start: 20230508, end: 20230515
  91. KETOPROFEN [Concomitant]
     Active Substance: KETOPROFEN
     Dosage: UNK
     Route: 048
     Dates: start: 20230508, end: 20230515
  92. KETOPROFEN [Concomitant]
     Active Substance: KETOPROFEN
     Indication: Product used for unknown indication
     Dosage: UNK
     Route: 065
  93. PROPOFOL [Concomitant]
     Active Substance: PROPOFOL
     Indication: Product used for unknown indication
     Dosage: UNK
     Route: 065
  94. SULTAMICILLIN TOSYLATE [Concomitant]
     Active Substance: SULTAMICILLIN TOSYLATE
     Indication: Product used for unknown indication
     Dosage: UNK
     Route: 048
     Dates: start: 20230508, end: 20230515
  95. SULTAMICILLIN TOSYLATE [Concomitant]
     Active Substance: SULTAMICILLIN TOSYLATE
     Dosage: UNK
     Route: 065
  96. UNASYN [Concomitant]
     Active Substance: AMPICILLIN SODIUM\SULBACTAM SODIUM
     Indication: Pneumonia
     Dosage: UNK
     Route: 065
     Dates: start: 20230507, end: 20230508
  97. UNASYN [Concomitant]
     Active Substance: AMPICILLIN SODIUM\SULBACTAM SODIUM
     Dosage: UNK
     Route: 065
  98. ZOFRAN [Concomitant]
     Active Substance: ONDANSETRON HYDROCHLORIDE
     Dosage: UNK
     Route: 048
     Dates: start: 20230508, end: 20230515
  99. ZOFRAN [Concomitant]
     Active Substance: ONDANSETRON HYDROCHLORIDE
     Indication: Product used for unknown indication
     Dosage: UNK
     Route: 065

REACTIONS (1)
  - Cataract [Recovered/Resolved]

NARRATIVE: CASE EVENT DATE: 20230511
